FAERS Safety Report 6369994-1 (Version None)
Quarter: 2009Q3

REPORT INFORMATION
  Report Type: 
  Country: None (occurrence: None)
  Receive Date: 20090923
  Receipt Date: 20070828
  Transmission Date: 20100115
  Serious: Yes (Other)
  Sender: FDA-Public Use
  Company Number: US-ASTRAZENECA-2006UW08279

PATIENT
  Age: 33 Year
  Sex: Male
  Weight: 158.8 kg

DRUGS (17)
  1. SEROQUEL [Suspect]
     Indication: POST-TRAUMATIC STRESS DISORDER
     Dosage: 100-300 MG
     Route: 048
     Dates: start: 19980518
  2. SEROQUEL [Suspect]
     Route: 048
     Dates: start: 19980616, end: 20041014
  3. THORAZINE [Concomitant]
  4. OLANZAPINE [Concomitant]
  5. GLUCOPHAGE [Concomitant]
     Route: 065
  6. PREVACID [Concomitant]
     Dosage: 30 MG QD, BID
     Route: 065
  7. ATENOLOL [Concomitant]
     Dosage: 25 MG QD, 50 MG DAILY
     Route: 065
  8. ZOLOFT [Concomitant]
     Dosage: 50-100 MG
     Route: 065
  9. LORAZEPAM [Concomitant]
     Dosage: 0.5-3 MG
     Route: 065
  10. AVINZA [Concomitant]
     Indication: BACK PAIN
     Route: 065
     Dates: start: 20060327
  11. AUGMENTIN [Concomitant]
     Route: 065
  12. OXYCONTIN [Concomitant]
     Dosage: 10-40 MG
     Route: 065
  13. SERZONE [Concomitant]
     Dosage: 50-600 MG
     Route: 065
  14. LEVAQUIN [Concomitant]
     Route: 065
  15. TOPAMAX [Concomitant]
     Route: 065
  16. ALLEGRA [Concomitant]
     Route: 065
     Dates: start: 19970605
  17. DEPAKOTE [Concomitant]
     Dosage: 100-1000 MG
     Route: 065

REACTIONS (5)
  - DEPRESSION [None]
  - DIABETES MELLITUS [None]
  - OBESITY [None]
  - PANCREATITIS [None]
  - TARDIVE DYSKINESIA [None]
